FAERS Safety Report 15303350 (Version 3)
Quarter: 2019Q1

REPORT INFORMATION
  Report Type: Spontaneous
  Country: US (occurrence: US)
  Receive Date: 20180821
  Receipt Date: 20190215
  Transmission Date: 20190417
  Serious: Yes (Other)
  Sender: FDA-Public Use
  Company Number: US-AMGEN INC.-USASP2018109684

PATIENT
  Age: 37 Year
  Sex: Female

DRUGS (6)
  1. OCELLA [Concomitant]
     Active Substance: DROSPIRENONE\ETHINYL ESTRADIOL
     Indication: CONTRACEPTION
     Dosage: UNK UNK, CYCLICAL (OFF EVERY 4-6 MONTHS)
  2. ZOMIG [Concomitant]
     Active Substance: ZOLMITRIPTAN
     Indication: MIGRAINE
     Dosage: 5 MG, AS NECESSARY
     Route: 045
  3. RELPAX [Concomitant]
     Active Substance: ELETRIPTAN HYDROBROMIDE
     Indication: MIGRAINE
     Dosage: 40 MG, UNK
  4. MINIVELLE [Concomitant]
     Active Substance: ESTRADIOL
     Dosage: 1 MG, UNK (AS ^ADD BACK^ ESTROGEN WHEN CYCLES OFF)
  5. AIMOVIG [Suspect]
     Active Substance: ERENUMAB-AOOE
     Indication: MIGRAINE
     Dosage: 70 MG, QMO
     Route: 065
     Dates: start: 20180617
  6. NAPROSYN [Concomitant]
     Active Substance: NAPROXEN
     Indication: MIGRAINE
     Dosage: 500 MG, UNK

REACTIONS (1)
  - Lymphadenopathy [Not Recovered/Not Resolved]

NARRATIVE: CASE EVENT DATE: 20180718
